FAERS Safety Report 13548362 (Version 2)
Quarter: 2017Q2

REPORT INFORMATION
  Report Type: Spontaneous
  Country: US (occurrence: US)
  Receive Date: 20170516
  Receipt Date: 20170520
  Transmission Date: 20170830
  Serious: Yes (Hospitalization, Other)
  Sender: FDA-Public Use
  Company Number: US-TORRENT-00002741

PATIENT
  Age: 7 Year
  Sex: Female

DRUGS (4)
  1. VALPROIC ACID. [Interacting]
     Active Substance: VALPROIC ACID
  2. CLONAZEPAM. [Concomitant]
     Active Substance: CLONAZEPAM
  3. CLOBAZAM [Interacting]
     Active Substance: CLOBAZAM
  4. LAMOTRIGINE. [Suspect]
     Active Substance: LAMOTRIGINE

REACTIONS (5)
  - Therapeutic response decreased [Unknown]
  - Gait disturbance [Recovered/Resolved]
  - Somnolence [Recovered/Resolved]
  - Seizure [Recovered/Resolved]
  - Drug interaction [Unknown]
